FAERS Safety Report 20644824 (Version 1)
Quarter: 2022Q1

REPORT INFORMATION
  Report Type: Report from Study
  Country: DE (occurrence: DE)
  Receive Date: 20220328
  Receipt Date: 20220328
  Transmission Date: 20220423
  Serious: Yes (Life-Threatening, Hospitalization, Other)
  Sender: FDA-Public Use
  Company Number: DE-BRISTOL-MYERS SQUIBB COMPANY-2022-010008

PATIENT
  Age: 49 Year
  Sex: Male
  Weight: 101 kg

DRUGS (11)
  1. NIVOLUMAB [Suspect]
     Active Substance: NIVOLUMAB
     Indication: Glioblastoma
     Route: 058
     Dates: start: 20220301
  2. INVESTIGATIONAL PRODUCT [Suspect]
     Active Substance: INVESTIGATIONAL PRODUCT
     Indication: Glioblastoma
     Route: 042
     Dates: start: 20220201
  3. NIVOLUMAB\RELATLIMAB-RMBW [Suspect]
     Active Substance: NIVOLUMAB\RELATLIMAB-RMBW
     Indication: Glioblastoma
     Route: 058
     Dates: start: 20220301
  4. FEBUXOSTAT [Concomitant]
     Active Substance: FEBUXOSTAT
     Indication: Hyperuricaemia
     Dosage: 80 MILLIGRAM EVERY 1
     Route: 048
     Dates: start: 20200813
  5. LACOSAMIDE [Concomitant]
     Active Substance: LACOSAMIDE
     Indication: Seizure
     Dosage: 150 MILLIGRAM EVERY 12HOUR(S)
     Dates: start: 20201119
  6. ATORVASTATIN CALCIUM;EZETIMIBE;FENOFIBRATE [Concomitant]
     Indication: Hyperlipidaemia
     Dosage: 1 DOSAGE FORM EVERY 1?DAY(S) EZETIMIBE 10 MG,?ATORVASTATIN 20 MG
     Route: 048
     Dates: start: 201206
  7. NOVALGIN (METAMIZOLE SODIUM) [Concomitant]
     Active Substance: METAMIZOLE SODIUM
     Indication: Headache
     Dosage: 500 MILLIGRAM AS NECESSARY
     Route: 048
     Dates: start: 20220309
  8. NOVALGIN (METAMIZOLE SODIUM) [Concomitant]
     Active Substance: METAMIZOLE SODIUM
     Indication: Brain oedema
  9. MOMETASONE FUROATE [Concomitant]
     Active Substance: MOMETASONE FUROATE
     Indication: Eczema
     Route: 061
     Dates: start: 20220126
  10. NOVALGIN (METAMIZOLE SODIUM) [Concomitant]
     Active Substance: METAMIZOLE SODIUM
     Indication: Headache
     Dosage: 500 MILLIGRAM AS NECESSARY
     Route: 048
     Dates: start: 20220309
  11. NOVALGIN (METAMIZOLE SODIUM) [Concomitant]
     Active Substance: METAMIZOLE SODIUM
     Indication: Brain oedema

REACTIONS (1)
  - Seizure [Recovered/Resolved]

NARRATIVE: CASE EVENT DATE: 20220316
